FAERS Safety Report 16045719 (Version 9)
Quarter: 2022Q3

REPORT INFORMATION
  Report Type: Other
  Country: CA (occurrence: None)
  Receive Date: 20190307
  Receipt Date: 20220815
  Transmission Date: 20221026
  Serious: Yes (Hospitalization, Disabling, Other)
  Sender: FDA-Public Use
  Company Number: CA-ROCHE-1551878

PATIENT
  Sex: Female
  Weight: 52 kg

DRUGS (8)
  1. ACTEMRA [Suspect]
     Active Substance: TOCILIZUMAB
     Indication: Rheumatoid arthritis
     Route: 042
     Dates: start: 20110815, end: 20120726
  2. ACTEMRA [Suspect]
     Active Substance: TOCILIZUMAB
     Route: 042
     Dates: start: 20120822, end: 20210715
  3. ACTEMRA [Suspect]
     Active Substance: TOCILIZUMAB
     Dosage: 20 MG/ML
     Route: 042
     Dates: start: 20210811
  4. METHOTREXATE [Concomitant]
     Active Substance: METHOTREXATE
     Indication: Product used for unknown indication
     Route: 048
  5. FOLIC ACID [Concomitant]
     Active Substance: FOLIC ACID
     Indication: Product used for unknown indication
  6. NAPROXEN [Concomitant]
     Active Substance: NAPROXEN
     Indication: Product used for unknown indication
  7. RANITIDINE [Concomitant]
     Active Substance: RANITIDINE
     Indication: Product used for unknown indication
  8. CLINDAMYCIN [Concomitant]
     Active Substance: CLINDAMYCIN
     Indication: Product used for unknown indication
     Dosage: 150 MG X 4, PRIOR TO DENTAL WORK ONLY.

REACTIONS (18)
  - Hand deformity [Not Recovered/Not Resolved]
  - Foot deformity [Recovering/Resolving]
  - Blood iron decreased [Unknown]
  - Staphylococcal infection [Unknown]
  - Weight decreased [Unknown]
  - Urinary tract infection [Unknown]
  - Cystitis [Unknown]
  - Rheumatoid arthritis [Not Recovered/Not Resolved]
  - Blood pressure fluctuation [Unknown]
  - Blood pressure diastolic decreased [Unknown]
  - Nasopharyngitis [Recovering/Resolving]
  - Localised infection [Not Recovered/Not Resolved]
  - Nasopharyngitis [Not Recovered/Not Resolved]
  - Urinary tract infection [Unknown]
  - Weight increased [Unknown]
  - Localised infection [Not Recovered/Not Resolved]
  - Skin ulcer [Not Recovered/Not Resolved]
  - Localised infection [Unknown]

NARRATIVE: CASE EVENT DATE: 20160101
